FAERS Safety Report 4914604-0 (Version None)
Quarter: 2006Q1

REPORT INFORMATION
  Report Type: 
  Country: None (occurrence: None)
  Receive Date: 20060216
  Receipt Date: 20051031
  Transmission Date: 20060701
  Serious: Yes (Hospitalization)
  Sender: FDA-Public Use
  Company Number: US-MERCK-0511USA00344

PATIENT
  Age: 48 Year
  Sex: Male
  Weight: 91 kg

DRUGS (25)
  1. VIOXX [Suspect]
     Indication: ARTHRITIS
     Route: 048
     Dates: start: 19990501, end: 20040930
  2. VIOXX [Suspect]
     Indication: RHEUMATOID ARTHRITIS
     Route: 048
     Dates: start: 19990501, end: 20040930
  3. CARISOPRODOL [Concomitant]
     Indication: PAIN
     Route: 065
     Dates: start: 20020919, end: 20040101
  4. LORCET-HD [Concomitant]
     Indication: ARTHRITIS
     Route: 065
     Dates: start: 20020919
  5. ZANAFLEX [Concomitant]
     Route: 065
     Dates: start: 20020824, end: 20050101
  6. VASOTEC RPD [Concomitant]
     Indication: HYPERTENSION
     Route: 048
     Dates: start: 19970101
  7. ENALAPRIL MALEATE [Concomitant]
     Indication: HYPERTENSION
     Route: 065
     Dates: start: 20020816, end: 20030402
  8. BISOPROLOL [Concomitant]
     Indication: HYPERTENSION
     Route: 065
     Dates: start: 20020831
  9. BISOPROLOL [Concomitant]
     Indication: CARDIAC DISORDER
     Route: 065
     Dates: start: 20020831
  10. LASIX [Concomitant]
     Indication: OEDEMA PERIPHERAL
     Route: 065
     Dates: start: 19960801
  11. LASIX [Concomitant]
     Indication: FLUID RETENTION
     Route: 065
     Dates: start: 19960801
  12. FUROSEMIDE [Concomitant]
     Indication: OEDEMA PERIPHERAL
     Route: 065
     Dates: start: 20020821, end: 20030401
  13. FUROSEMIDE [Concomitant]
     Indication: FLUID RETENTION
     Route: 065
     Dates: start: 20020821, end: 20030401
  14. CLONIDINE [Concomitant]
     Indication: HYPERTENSION
     Route: 065
     Dates: start: 20021120
  15. LIPITOR [Concomitant]
     Indication: BLOOD CHOLESTEROL INCREASED
     Route: 065
     Dates: start: 20020805
  16. ASPIRIN [Concomitant]
     Indication: PROPHYLAXIS
     Route: 065
     Dates: start: 20020918
  17. ALPRAZOLAM [Concomitant]
     Indication: ANXIETY
     Route: 065
  18. SEREVENT [Concomitant]
     Indication: ASTHMA
     Route: 065
  19. ZYRTEC [Concomitant]
     Indication: HYPERSENSITIVITY
     Route: 065
  20. NASONEX [Concomitant]
     Indication: HYPERSENSITIVITY
     Route: 065
  21. RANITIDINE [Concomitant]
     Indication: GASTROOESOPHAGEAL REFLUX DISEASE
     Route: 065
  22. RANITIDINE [Concomitant]
     Indication: DYSPEPSIA
     Route: 065
  23. PROVENTIL [Concomitant]
     Indication: ASTHMA
     Route: 065
  24. CLARINEX [Concomitant]
     Indication: HYPERSENSITIVITY
     Route: 065
  25. VIAGRA [Concomitant]
     Indication: ERECTILE DYSFUNCTION
     Route: 065

REACTIONS (4)
  - DIABETES MELLITUS [None]
  - MYOCARDIAL INFARCTION [None]
  - SLEEP APNOEA SYNDROME [None]
  - THROMBOSIS [None]
